FAERS Safety Report 6461822-9 (Version None)
Quarter: 2009Q4

REPORT INFORMATION
  Report Type: 
  Country: None (occurrence: None)
  Receive Date: 20091123
  Receipt Date: 20091109
  Transmission Date: 20100525
  Serious: Yes (Hospitalization, Other)
  Sender: FDA-Public Use
  Company Number: 2009AC000172

PATIENT
  Age: 51 Year
  Sex: Female
  Weight: 90.2658 kg

DRUGS (36)
  1. DIGOXIN [Suspect]
     Indication: ATRIAL FIBRILLATION
     Dosage: 0.25 MG; QD; PO
     Route: 048
     Dates: start: 20020719, end: 20050719
  2. NEXIUM [Concomitant]
  3. VYTORIN [Concomitant]
  4. CATAPRES [Concomitant]
  5. CARVEDILOL [Concomitant]
  6. RAMIPRIL [Concomitant]
  7. LEXAPRO [Concomitant]
  8. EXELON [Concomitant]
  9. NOVOLOG [Concomitant]
  10. LANTUS [Concomitant]
  11. AMIODARONE HCL [Concomitant]
  12. PREVACID [Concomitant]
  13. CLONIDINE [Concomitant]
  14. ASPIRIN [Concomitant]
  15. TRIAMCINOLONE [Concomitant]
  16. MYCOSTATIN [Concomitant]
  17. ATROVENT [Concomitant]
  18. HUMALOG [Concomitant]
  19. PROTONIX [Concomitant]
  20. PROVENTIL NEBULIZER [Concomitant]
  21. ALTACE [Concomitant]
  22. AMARYL [Concomitant]
  23. CARDIZEM [Concomitant]
  24. CARDARONE [Concomitant]
  25. COREG [Concomitant]
  26. GLUCOPHAGE [Concomitant]
  27. LANTUS [Concomitant]
  28. PREVACID [Concomitant]
  29. REGLAN [Concomitant]
  30. LASIX [Concomitant]
  31. LEVAQUIN [Concomitant]
  32. MAGNESIUM [Concomitant]
  33. VYTORIN [Concomitant]
  34. AMIODARONE HCL [Concomitant]
  35. LOVASTATIN [Concomitant]
  36. EXELON [Concomitant]

REACTIONS (33)
  - AORTIC VALVE DISEASE [None]
  - ARTHRALGIA [None]
  - ATRIAL FIBRILLATION [None]
  - ATRIAL FLUTTER [None]
  - BLOOD PRESSURE SYSTOLIC INCREASED [None]
  - CARDIAC FAILURE CONGESTIVE [None]
  - CARDIOMEGALY [None]
  - CEREBROVASCULAR ACCIDENT [None]
  - CEREBROVASCULAR DISORDER [None]
  - CHEST DISCOMFORT [None]
  - CONTUSION [None]
  - DIABETES MELLITUS [None]
  - DYSPHAGIA [None]
  - DYSPNOEA [None]
  - ECONOMIC PROBLEM [None]
  - EJECTION FRACTION DECREASED [None]
  - EMBOLISM [None]
  - FALL [None]
  - HYPERLIPIDAEMIA [None]
  - HYPERTENSION [None]
  - HYPOTHYROIDISM [None]
  - INJURY [None]
  - LOBAR PNEUMONIA [None]
  - MAGNESIUM DEFICIENCY [None]
  - MALAISE [None]
  - PAIN IN EXTREMITY [None]
  - PALPITATIONS [None]
  - PERIPHERAL COLDNESS [None]
  - PERIPHERAL ISCHAEMIA [None]
  - PLEURAL EFFUSION [None]
  - TREATMENT NONCOMPLIANCE [None]
  - URINARY TRACT INFECTION [None]
  - VENTRICULAR HYPOKINESIA [None]
